FAERS Safety Report 10456960 (Version 2)
Quarter: 2014Q3

REPORT INFORMATION
  Report Type: Report from Study
  Country: US (occurrence: US)
  Receive Date: 20140916
  Receipt Date: 20140916
  Transmission Date: 20150326
  Serious: Yes (Other)
  Sender: FDA-Public Use
  Company Number: US-ABBVIE-14K-163-1254614-00

PATIENT
  Age: 31 Year
  Sex: Male
  Weight: 105.78 kg

DRUGS (2)
  1. HUMIRA [Suspect]
     Active Substance: ADALIMUMAB
     Indication: CROHN^S DISEASE
     Route: 058
     Dates: start: 2008
  2. HUMIRA [Suspect]
     Active Substance: ADALIMUMAB
     Route: 058
     Dates: start: 2014

REACTIONS (3)
  - Gastrointestinal ulcer [Unknown]
  - Gastrointestinal inflammation [Unknown]
  - Anal ulcer [Unknown]

NARRATIVE: CASE EVENT DATE: 201312
